FAERS Safety Report 9514032 (Version 1)
Quarter: 2013Q3

REPORT INFORMATION
  Report Type: Report from Study
  Country: CH (occurrence: CH)
  Receive Date: 20130910
  Receipt Date: 20130910
  Transmission Date: 20140515
  Serious: Yes (Other)
  Sender: FDA-Public Use
  Company Number: CH-MYLANLABS-2013S1019667

PATIENT
  Age: 70 Year
  Sex: Male
  Weight: 53 kg

DRUGS (4)
  1. TACROLIMUS [Suspect]
     Indication: ACCIDENTAL OVERDOSE
     Dosage: HIGH DOSE ADMINISTERED DAILY FOR 4D
     Route: 048
  2. TACROLIMUS [Suspect]
     Indication: IMMUNOSUPPRESSANT DRUG THERAPY
     Dosage: HIGH DOSE ADMINISTERED DAILY FOR 4D
     Route: 048
  3. TACROLIMUS [Suspect]
     Indication: ACCIDENTAL OVERDOSE
     Dosage: 0.014 MG/KG/DAY
     Route: 048
  4. TACROLIMUS [Suspect]
     Indication: IMMUNOSUPPRESSANT DRUG THERAPY
     Dosage: 0.014 MG/KG/DAY
     Route: 048

REACTIONS (5)
  - Tremor [Recovering/Resolving]
  - Mydriasis [Recovering/Resolving]
  - Accidental overdose [Recovering/Resolving]
  - Encephalopathy [Recovering/Resolving]
  - Renal impairment [Recovering/Resolving]
